FAERS Safety Report 15593943 (Version 2)
Quarter: 2018Q4

REPORT INFORMATION
  Report Type: Spontaneous
  Country: DE (occurrence: DE)
  Receive Date: 20181106
  Receipt Date: 20181112
  Transmission Date: 20190205
  Serious: Yes (Other)
  Sender: FDA-Public Use
  Company Number: PHHY2018DE023860

PATIENT
  Age: 9 Year
  Sex: Female

DRUGS (2)
  1. METHOTREXATE. [Suspect]
     Active Substance: METHOTREXATE
     Indication: TUBULOINTERSTITIAL NEPHRITIS AND UVEITIS SYNDROME
     Dosage: 15 MG, QW
     Route: 058
  2. ADALIMUMAB [Concomitant]
     Active Substance: ADALIMUMAB
     Indication: TUBULOINTERSTITIAL NEPHRITIS AND UVEITIS SYNDROME
     Dosage: 40 MG, Q2W
     Route: 065

REACTIONS (3)
  - Product use in unapproved indication [Unknown]
  - Tubulointerstitial nephritis and uveitis syndrome [Unknown]
  - Hepatic enzyme increased [Unknown]
